FAERS Safety Report 6512562-9 (Version None)
Quarter: 2009Q4

REPORT INFORMATION
  Report Type: 
  Country: None (occurrence: None)
  Receive Date: 20091222
  Receipt Date: 20091216
  Transmission Date: 20100525
  Serious: Yes (Hospitalization, Disabling, Other)
  Sender: FDA-Public Use
  Company Number: US-MERCK-0901USA01110

PATIENT
  Age: 69 Year
  Sex: Female

DRUGS (2)
  1. FOSAMAX [Suspect]
     Indication: OSTEOPOROSIS
     Route: 048
     Dates: start: 20041113, end: 20050701
  2. PREDNISONE [Suspect]
     Route: 065

REACTIONS (107)
  - ABDOMINAL PAIN [None]
  - ABDOMINAL TENDERNESS [None]
  - ABSCESS SOFT TISSUE [None]
  - ACUTE MYOCARDIAL INFARCTION [None]
  - ANAEMIA [None]
  - ANEURYSM [None]
  - ANXIETY [None]
  - AORTIC ANEURYSM [None]
  - ARTERIOSCLEROSIS CORONARY ARTERY [None]
  - ARTERITIS [None]
  - ARTHRALGIA [None]
  - ASTHENIA [None]
  - AUTOIMMUNE NEUTROPENIA [None]
  - BACK DISORDER [None]
  - BONE DENSITY DECREASED [None]
  - BONE NEOPLASM [None]
  - BONE NEOPLASM MALIGNANT [None]
  - BRAIN NEOPLASM [None]
  - BRAIN NEOPLASM MALIGNANT [None]
  - BRUXISM [None]
  - BUNDLE BRANCH BLOCK LEFT [None]
  - CARDIAC FAILURE [None]
  - CARDIAC FAILURE CONGESTIVE [None]
  - CARDIAC VALVE DISEASE [None]
  - CEREBRAL ISCHAEMIA [None]
  - CEREBROVASCULAR ACCIDENT [None]
  - CHEST PAIN [None]
  - CORONARY ARTERY DISEASE [None]
  - COUGH [None]
  - DEAFNESS NEUROSENSORY [None]
  - DECREASED APPETITE [None]
  - DERMATITIS [None]
  - DIARRHOEA [None]
  - DIPLOPIA [None]
  - DIZZINESS [None]
  - DRUG HYPERSENSITIVITY [None]
  - DYSGEUSIA [None]
  - DYSPEPSIA [None]
  - DYSPHONIA [None]
  - DYSPNOEA [None]
  - EAR INFECTION [None]
  - ELECTROCARDIOGRAM ABNORMAL [None]
  - EMOTIONAL DISORDER [None]
  - ERYTHEMA [None]
  - EYE INFECTION [None]
  - FATIGUE [None]
  - FEELING OF BODY TEMPERATURE CHANGE [None]
  - FISTULA DISCHARGE [None]
  - GAIT DISTURBANCE [None]
  - GINGIVAL INFECTION [None]
  - GINGIVITIS [None]
  - GLOSSODYNIA [None]
  - HEPATITIS B ANTIBODY POSITIVE [None]
  - HYPERTENSION [None]
  - HYPOCHROMIC ANAEMIA [None]
  - HYPOTHYROIDISM [None]
  - IMMUNE SYSTEM DISORDER [None]
  - IMPAIRED HEALING [None]
  - INCREASED TENDENCY TO BRUISE [None]
  - INSOMNIA [None]
  - INTERSTITIAL GRANULOMATOUS DERMATITIS [None]
  - IRIDOCYCLITIS [None]
  - IRON DEFICIENCY ANAEMIA [None]
  - JOINT INJURY [None]
  - LEUKOPENIA [None]
  - LUNG DISORDER [None]
  - LYMPHADENOPATHY [None]
  - LYMPHOID TISSUE HYPERPLASIA [None]
  - MALIGNANT NEOPLASM OF SPINAL CORD [None]
  - MASS [None]
  - MITRAL VALVE INCOMPETENCE [None]
  - MITRAL VALVE PROLAPSE [None]
  - MULTIPLE INJURIES [None]
  - MUSCULAR WEAKNESS [None]
  - MYALGIA [None]
  - NECK MASS [None]
  - NEOPLASM [None]
  - NEUTROPENIA [None]
  - OEDEMA PERIPHERAL [None]
  - OPEN ANGLE GLAUCOMA [None]
  - ORAL CAVITY FISTULA [None]
  - ORAL DISORDER [None]
  - ORAL INFECTION [None]
  - ORAL PAIN [None]
  - OROPHARYNGEAL PAIN [None]
  - OSTEOMYELITIS [None]
  - OSTEONECROSIS [None]
  - PRESBYOPIA [None]
  - PULMONARY FIBROSIS [None]
  - PYREXIA [None]
  - RAYNAUD'S PHENOMENON [None]
  - RED BLOOD CELL SEDIMENTATION RATE INCREASED [None]
  - SARCOIDOSIS [None]
  - SEPSIS [None]
  - SINUSITIS [None]
  - SKIN INFECTION [None]
  - SPINAL CORD NEOPLASM [None]
  - SPINAL FRACTURE [None]
  - THROMBOCYTOPENIA [None]
  - TONGUE BITING [None]
  - TONGUE DISORDER [None]
  - TOOTH ABSCESS [None]
  - TOOTH DISORDER [None]
  - TOOTH INFECTION [None]
  - VERTIGO [None]
  - WEIGHT DECREASED [None]
  - WHITE BLOOD CELL COUNT DECREASED [None]
